FAERS Safety Report 8300669 (Version 2)
Quarter: 2012Q4

REPORT INFORMATION
  Report Type: 
  Country: US (occurrence: US)
  Receive Date: 20111219
  Receipt Date: 20121026
  Transmission Date: 20130627
  Serious: No
  Sender: FDA-Public Use
  Company Number: US-ASTRAZENECA-2011SE48984

PATIENT
  Age: 78 Year
  Sex: Female

DRUGS (2)
  1. CRESTOR [Suspect]
     Indication: BLOOD CHOLESTEROL ABNORMAL
     Route: 048
  2. VESICARE [Concomitant]

REACTIONS (4)
  - Back disorder [Unknown]
  - Blood cholesterol decreased [Unknown]
  - Back injury [Unknown]
  - Insomnia [Unknown]
